FAERS Safety Report 8882148 (Version 1)
Quarter: 2012Q4

REPORT INFORMATION
  Report Type: 
  Country: US (occurrence: US)
  Receive Date: 20121105
  Receipt Date: 20121105
  Transmission Date: 20130627
  Serious: Yes (Other)
  Sender: FDA-Public Use
  Company Number: US-BAYER-2012-114426

PATIENT
  Sex: Female

DRUGS (1)
  1. YASMIN [Suspect]
     Indication: ACNE
     Dosage: UNK
     Dates: start: 200305

REACTIONS (4)
  - Pulmonary embolism [None]
  - Injury [None]
  - Pain [None]
  - Pain [None]
